FAERS Safety Report 9838905 (Version 1)
Quarter: 2014Q1

REPORT INFORMATION
  Report Type: Spontaneous
  Country: GB (occurrence: None)
  Receive Date: 20140116
  Receipt Date: 20140116
  Transmission Date: 20141002
  Serious: Yes (Other)
  Sender: FDA-Public Use
  Company Number: AUR-APL-2014-00222

PATIENT
  Age: 65 Year
  Sex: Female

DRUGS (2)
  1. LISINOPRIL [Suspect]
     Indication: HYPERTENSION
     Dosage: (5 MG), ORAL
     Route: 048
     Dates: start: 20130401, end: 20130924
  2. PARACETAMOL (PARACETAMOL) [Concomitant]

REACTIONS (4)
  - Cough [None]
  - Dysphonia [None]
  - Sleep disorder [None]
  - Sensation of foreign body [None]
